FAERS Safety Report 9323665 (Version 3)
Quarter: 2013Q3

REPORT INFORMATION
  Report Type: Spontaneous
  Country: FR (occurrence: FR)
  Receive Date: 20130603
  Receipt Date: 20130716
  Transmission Date: 20140515
  Serious: Yes (Hospitalization)
  Sender: FDA-Public Use
  Company Number: PHHY2013FR055266

PATIENT
  Age: 48 Year
  Sex: Female

DRUGS (7)
  1. ACLASTA [Suspect]
     Indication: OSTEOPOROSIS
     Dosage: 5MG
     Route: 042
     Dates: start: 20130529
  2. VITAMIN B12 [Concomitant]
     Indication: PERNICIOUS ANAEMIA
     Dosage: UNK, MONTHLY
     Route: 030
  3. TARDYFERON [Concomitant]
     Indication: IRON DEFICIENCY
     Dosage: UNK
  4. LEVOTHYROX [Concomitant]
     Indication: HYPOTHYROIDISM
     Dosage: 25 UG
  5. ATARAX//HYDROXYZINE [Concomitant]
     Indication: HYPERSENSITIVITY
     Dosage: 25 MG
  6. OESTRODOSE [Concomitant]
     Indication: MENOPAUSE
     Dosage: UNK
  7. LUTENYL [Concomitant]
     Indication: MENOPAUSE
     Dosage: UNK

REACTIONS (7)
  - Chest pain [Recovered/Resolved]
  - Musculoskeletal stiffness [Recovered/Resolved]
  - Pyrexia [Recovered/Resolved]
  - Fatigue [Recovering/Resolving]
  - Chills [Recovered/Resolved]
  - Headache [Not Recovered/Not Resolved]
  - Myalgia [Unknown]
